FAERS Safety Report 15490745 (Version 2)
Quarter: 2019Q1

REPORT INFORMATION
  Report Type: Spontaneous
  Country: BR (occurrence: BR)
  Receive Date: 20181011
  Receipt Date: 20190104
  Transmission Date: 20190417
  Serious: Yes (Other)
  Sender: FDA-Public Use
  Company Number: BR-AMGEN-BRASP2018142401

PATIENT
  Age: 50 Year
  Sex: Female

DRUGS (1)
  1. ENBREL [Suspect]
     Active Substance: ETANERCEPT
     Indication: PRODUCT USED FOR UNKNOWN INDICATION
     Dosage: 50 MG, UNK (EVERY 15 DAYS)
     Route: 065
     Dates: start: 2015

REACTIONS (4)
  - Product use issue [Unknown]
  - Diabetes mellitus [Unknown]
  - Thyroid mass [Unknown]
  - Visual impairment [Unknown]

NARRATIVE: CASE EVENT DATE: 2015
